FAERS Safety Report 8455434 (Version 2)
Quarter: 2012Q4

REPORT INFORMATION
  Report Type: 
  Country: US (occurrence: US)
  Receive Date: 20120313
  Receipt Date: 20120913
  Transmission Date: 20130627
  Serious: Yes (Disabling, Other)
  Sender: FDA-Public Use
  Company Number: US-CELGENEUS-163-21880-12030492

PATIENT
  Age: 60 Year
  Sex: Male

DRUGS (6)
  1. REVLIMID [Suspect]
     Indication: MULTIPLE MYELOMA
     Dosage: 10 Milligram
     Route: 048
     Dates: start: 20100318
  2. REVLIMID [Suspect]
     Dosage: 2.5 Milligram
     Route: 048
     Dates: start: 201112, end: 20111206
  3. REVLIMID [Suspect]
     Dosage: 10 Milligram
     Route: 048
     Dates: start: 20120124, end: 201202
  4. DECADRON [Concomitant]
     Indication: MYELOMA
     Dosage: 5.7143 Milligram
     Route: 048
     Dates: start: 20120229
  5. PERCOCET [Concomitant]
     Indication: PAIN
     Route: 065
     Dates: start: 20120229
  6. ATENOLOL [Concomitant]
     Indication: BLOOD PRESSURE
     Dosage: 25 Milligram
     Route: 065

REACTIONS (3)
  - Fatigue [Recovered/Resolved]
  - Dehydration [Unknown]
  - Disease progression [Unknown]
